FAERS Safety Report 5355301-X (Version None)
Quarter: 2007Q2

REPORT INFORMATION
  Report Type: 
  Country: None (occurrence: None)
  Receive Date: 20070613
  Receipt Date: 20070607
  Transmission Date: 20071010
  Serious: Yes (Life-Threatening, Hospitalization, Other)
  Sender: FDA-Public Use
  Company Number: JP-BRISTOL-MYERS SQUIBB COMPANY-13744115

PATIENT
  Age: 26 Year
  Sex: Male

DRUGS (5)
  1. BLEOMYCIN [Suspect]
     Indication: TESTICULAR CANCER METASTATIC
  2. LASTET [Suspect]
     Indication: TESTICULAR CANCER METASTATIC
  3. CISPLATIN [Suspect]
     Indication: TESTICULAR CANCER METASTATIC
  4. PACLITAXEL [Suspect]
     Indication: TESTICULAR CANCER METASTATIC
  5. IFOSFAMIDE [Suspect]
     Indication: TESTICULAR CANCER METASTATIC

REACTIONS (9)
  - ABDOMINAL PAIN [None]
  - ANAEMIA [None]
  - ASCITES [None]
  - DISSEMINATED INTRAVASCULAR COAGULATION [None]
  - HAEMORRHAGE [None]
  - HEPATOTOXICITY [None]
  - MELAENA [None]
  - METASTASES TO SMALL INTESTINE [None]
  - TUMOUR LYSIS SYNDROME [None]
